FAERS Safety Report 5525436-7 (Version None)
Quarter: 2007Q4

REPORT INFORMATION
  Report Type: 
  Country: None (occurrence: None)
  Receive Date: 20071126
  Receipt Date: 20071112
  Transmission Date: 20080405
  Serious: Yes (Death)
  Sender: FDA-Public Use
  Company Number: NL-PURDUE-GBR_2007_0003452

PATIENT
  Age: 78 Year
  Sex: Male

DRUGS (3)
  1. OXYCONTIN [Suspect]
     Indication: DRUG USE FOR UNKNOWN INDICATION
     Dosage: 5 MG, BID
     Route: 065
     Dates: start: 20041221
  2. PARACETAMOL [Concomitant]
     Indication: PAIN
     Dosage: 6 TIMES AT 500 MG
     Route: 065
  3. NSAID'S [Concomitant]
     Indication: PAIN
     Dosage: 400 MG, TID
     Route: 065

REACTIONS (1)
  - DEATH [None]
